FAERS Safety Report 7701265-0 (Version None)
Quarter: 2011Q3

REPORT INFORMATION
  Report Type: 
  Country: None (occurrence: None)
  Receive Date: 20110822
  Receipt Date: 20110815
  Transmission Date: 20111222
  Serious: Yes (Other)
  Sender: FDA-Public Use
  Company Number: TR-GLAXOSMITHKLINE-B0740681A

PATIENT
  Age: 28 Year
  Sex: Male

DRUGS (2)
  1. RANITIDINE [Suspect]
     Indication: URTICARIA
     Route: 042
  2. PHENIRAMINE [Concomitant]
     Indication: RASH
     Route: 042

REACTIONS (4)
  - HYPOTENSION [None]
  - BRADYCARDIA [None]
  - DIZZINESS [None]
  - NODAL RHYTHM [None]
